FAERS Safety Report 15537204 (Version 1)
Quarter: 2018Q4

REPORT INFORMATION
  Report Type: Spontaneous
  Country: US (occurrence: US)
  Receive Date: 20181022
  Receipt Date: 20181022
  Transmission Date: 20190205
  Serious: Yes (Other)
  Sender: FDA-Public Use
  Company Number: PHHY2018US128821

PATIENT
  Age: 47 Year
  Sex: Female

DRUGS (1)
  1. METHOTREXATE. [Suspect]
     Active Substance: METHOTREXATE
     Indication: HISTIOCYTIC SARCOMA
     Route: 042

REACTIONS (6)
  - Malignant pleural effusion [Unknown]
  - Malignant neoplasm progression [Unknown]
  - Metastases to lung [Unknown]
  - Product use in unapproved indication [Unknown]
  - Histiocytic sarcoma [Unknown]
  - Drug intolerance [Unknown]
